FAERS Safety Report 10585057 (Version 1)
Quarter: 2014Q4

REPORT INFORMATION
  Report Type: Spontaneous
  Country: CN (occurrence: CN)
  Receive Date: 20141114
  Receipt Date: 20141114
  Transmission Date: 20150529
  Serious: Yes (Hospitalization)
  Sender: FDA-Public Use
  Company Number: CN-ALLERGAN-1423373US

PATIENT
  Age: 88 Year
  Sex: Male

DRUGS (1)
  1. BETAGAN [Suspect]
     Active Substance: LEVOBUNOLOL HYDROCHLORIDE
     Indication: GLAUCOMA
     Dosage: ONE TO TWO DROPS TO EACH EYE, TWO TO THREE TIMES PER DAY
     Route: 047

REACTIONS (7)
  - Sinus bradycardia [Recovered/Resolved]
  - Atrioventricular block [Recovered/Resolved]
  - Abdominal pain [Unknown]
  - Fatigue [Unknown]
  - Dizziness [Unknown]
  - Sinus arrest [Recovered/Resolved]
  - Palpitations [Unknown]
